FAERS Safety Report 6465925-4 (Version None)
Quarter: 2009Q4

REPORT INFORMATION
  Report Type: 
  Country: None (occurrence: None)
  Receive Date: 20091202
  Receipt Date: 20091123
  Transmission Date: 20100525
  Serious: Yes (Hospitalization)
  Sender: FDA-Public Use
  Company Number: US-BIOGENIDEC-2009BI038573

PATIENT
  Age: 43 Year
  Sex: Female

DRUGS (1)
  1. TYSABRI [Suspect]
     Indication: MULTIPLE SCLEROSIS
     Route: 042
     Dates: start: 20081009

REACTIONS (6)
  - FALL [None]
  - FIBULA FRACTURE [None]
  - JOINT SPRAIN [None]
  - MUSCLE SPASTICITY [None]
  - PAIN [None]
  - TIBIA FRACTURE [None]
